FAERS Safety Report 16053477 (Version 1)
Quarter: 2019Q1

REPORT INFORMATION
  Report Type: Spontaneous
  Country: US (occurrence: US)
  Receive Date: 20190308
  Receipt Date: 20190308
  Transmission Date: 20190418
  Serious: No
  Sender: FDA-Public Use
  Company Number: US-PFIZER INC-2018344208

PATIENT
  Age: 61 Year
  Sex: Female
  Weight: 91 kg

DRUGS (10)
  1. XANI [Concomitant]
     Indication: PANIC DISORDER
     Dosage: UNK
  2. IBRANCE [Suspect]
     Active Substance: PALBOCICLIB
     Dosage: 100 MG, CYCLIC (DAILY, FOR 21 DAYS AND OFF 7 DAYS)
  3. ZETIA [Concomitant]
     Active Substance: EZETIMIBE
     Dosage: UNK
  4. XANI [Concomitant]
     Indication: PSYCHIATRIC SYMPTOM
  5. ASPIRIN. [Concomitant]
     Active Substance: ASPIRIN
     Dosage: 81 MG, UNK
  6. CHLORAZINE [Concomitant]
     Dosage: UNK
  7. IBRANCE [Suspect]
     Active Substance: PALBOCICLIB
     Indication: BREAST CANCER FEMALE
     Dosage: 150 MG, CYCLIC (DAILY, FOR 21 DAYS AND OFF 7 DAYS)
     Dates: start: 2017
  8. CLONIDINE. [Concomitant]
     Active Substance: CLONIDINE
     Dosage: UNK
  9. INSULIN [Concomitant]
     Active Substance: INSULIN NOS
     Dosage: 20 IU, DAILY
  10. CARVEDILOL. [Concomitant]
     Active Substance: CARVEDILOL
     Dosage: UNK

REACTIONS (5)
  - Skin exfoliation [Recovered/Resolved]
  - Malaise [Not Recovered/Not Resolved]
  - Burning sensation [Recovered/Resolved]
  - Skin disorder [Recovered/Resolved]
  - Renal disorder [Unknown]

NARRATIVE: CASE EVENT DATE: 2017
